FAERS Safety Report 6999280-8 (Version None)
Quarter: 2010Q3

REPORT INFORMATION
  Report Type: 
  Country: None (occurrence: None)
  Receive Date: 20100920
  Receipt Date: 20100212
  Transmission Date: 20110219
  Serious: No
  Sender: FDA-Public Use
  Company Number: US-ASTRAZENECA-2010SE06463

PATIENT
  Sex: Female

DRUGS (2)
  1. SEROQUEL [Suspect]
     Route: 048
     Dates: start: 20080101, end: 20091201
  2. SEROQUEL [Suspect]
     Route: 048
     Dates: start: 20091201

REACTIONS (2)
  - INTENTIONAL DRUG MISUSE [None]
  - MUSCLE SPASMS [None]
